FAERS Safety Report 6495741-9 (Version None)
Quarter: 2009Q4

REPORT INFORMATION
  Report Type: 
  Country: None (occurrence: None)
  Receive Date: 20091214
  Receipt Date: 20091209
  Transmission Date: 20100525
  Serious: Yes (Death)
  Sender: FDA-Public Use
  Company Number: US-ABBOTT-09P-163-0613705-00

PATIENT
  Sex: Male
  Weight: 64 kg

DRUGS (3)
  1. ZEMPLAR [Suspect]
     Indication: HYPERPARATHYROIDISM
     Dates: end: 20090101
  2. EPOGEN [Concomitant]
     Indication: DIALYSIS
  3. HEPARIN [Concomitant]
     Indication: DIALYSIS

REACTIONS (5)
  - ASTHENIA [None]
  - DYSPHONIA [None]
  - HEADACHE [None]
  - PRURITUS [None]
  - RESPIRATORY ARREST [None]
